FAERS Safety Report 15214856 (Version 1)
Quarter: 2018Q3

REPORT INFORMATION
  Report Type: Spontaneous
  Country: US (occurrence: US)
  Receive Date: 20180703
  Receipt Date: 20180703
  Transmission Date: 20181010
  Serious: Yes (Hospitalization)
  Sender: FDA-Public Use
  Company Number: None

PATIENT
  Age: 51 Year
  Sex: Female

DRUGS (1)
  1. EPOPROSTENOL 1.5MG TEVA [Suspect]
     Active Substance: EPOPROSTENOL
     Indication: PULMONARY ARTERIAL HYPERTENSION
     Dosage: ?          OTHER DOSE:17NG/KG/MIN;OTHER FREQUENCY:CONTINUOUS;?
     Route: 042
     Dates: start: 20180403

REACTIONS (2)
  - Influenza [None]
  - Dyspnoea [None]

NARRATIVE: CASE EVENT DATE: 20180607
